FAERS Safety Report 12885398 (Version 1)
Quarter: 2016Q4

REPORT INFORMATION
  Report Type: Spontaneous
  Country: US (occurrence: US)
  Receive Date: 20161025
  Receipt Date: 20161025
  Transmission Date: 20170207
  Serious: Yes (Life-Threatening, Hospitalization)
  Sender: FDA-Public Use
  Company Number: None

PATIENT
  Age: 64 Year
  Sex: Female
  Weight: 172 kg

DRUGS (16)
  1. SIMVASTATIN. [Concomitant]
     Active Substance: SIMVASTATIN
  2. HYDROCODONE-ACETAMINOPHEN [Concomitant]
     Active Substance: ACETAMINOPHEN\HYDROCODONE
  3. DOXAZOSIN MESYLATE. [Concomitant]
     Active Substance: DOXAZOSIN MESYLATE
  4. CARBONYL/ASCORBIC ACID (FE C TABLET) [Concomitant]
  5. AMLODIPINE/BENAZEPRIL [Suspect]
     Active Substance: AMLODIPINE BESYLATE\BENAZEPRIL HYDROCHLORIDE
     Route: 048
  6. ASPIRIN. [Concomitant]
     Active Substance: ASPIRIN
  7. POLYETHYLENE GLYCOL [Concomitant]
     Active Substance: POLYETHYLENE GLYCOLS
  8. SITAGLIPTIN PHOSPHATE (JANUVIA) [Concomitant]
  9. LYRICA [Concomitant]
     Active Substance: PREGABALIN
  10. INSULIN GLARGINE (LANTUS SOLOSTAR) [Concomitant]
  11. ATENOLOL. [Concomitant]
     Active Substance: ATENOLOL
  12. ABILIFY [Concomitant]
     Active Substance: ARIPIPRAZOLE
  13. LANSOPRAZOLE. [Concomitant]
     Active Substance: LANSOPRAZOLE
  14. ESCITALOPRAM OXALATE. [Concomitant]
     Active Substance: ESCITALOPRAM OXALATE
  15. PROMETHAZINE HCL [Concomitant]
     Active Substance: PROMETHAZINE HYDROCHLORIDE
  16. IRON [Concomitant]
     Active Substance: IRON

REACTIONS (8)
  - Lip swelling [None]
  - Pneumonia [None]
  - Acute respiratory failure [None]
  - Angioedema [None]
  - Mouth swelling [None]
  - Drooling [None]
  - Swollen tongue [None]
  - Speech disorder [None]

NARRATIVE: CASE EVENT DATE: 20160508
